FAERS Safety Report 15531893 (Version 1)
Quarter: 2018Q4

REPORT INFORMATION
  Report Type: Spontaneous
  Country: ES (occurrence: ES)
  Receive Date: 20181019
  Receipt Date: 20181019
  Transmission Date: 20190205
  Serious: Yes (Life-Threatening, Hospitalization)
  Sender: FDA-Public Use
  Company Number: ES-ACCORD-073671

PATIENT
  Age: 14 Year
  Sex: Female

DRUGS (4)
  1. TACROLIMUS. [Suspect]
     Active Substance: TACROLIMUS
     Indication: PRODUCT USED FOR UNKNOWN INDICATION
     Dosage: 750 MG EVERY 24 HOURS?03-OCT-2013, 1 TAB A DAY.
     Route: 048
     Dates: start: 200711, end: 20170308
  2. MYCOPHENOLIC ACID. [Suspect]
     Active Substance: MYCOPHENOLIC ACID
     Indication: PRODUCT USED FOR UNKNOWN INDICATION
     Dosage: 750 MG EVERY 24 HOURS?03-OCT-2013, 1 TAB A DAY.
     Route: 048
     Dates: start: 200711, end: 20170308
  3. FERO-GRADUMET 105 MG PROLONGED RELEASE TABLETS., 30 TABLETS [Concomitant]
     Dosage: 750 MG EVERY 24 HOURS?STRENGTH: 105 MG?03-OCT-2013, 1 TAB A DAY
     Route: 048
     Dates: start: 200711, end: 20170308
  4. IDEOS UNIDIA [Concomitant]
     Active Substance: CALCIUM CARBONATE\CHOLECALCIFEROL
     Dosage: 750 MG EVERY 24 HOURS
     Route: 048
     Dates: start: 200711, end: 20170308

REACTIONS (1)
  - Agranulocytosis [Recovering/Resolving]

NARRATIVE: CASE EVENT DATE: 20170308
